FAERS Safety Report 5513893-1 (Version None)
Quarter: 2007Q4

REPORT INFORMATION
  Report Type: 
  Country: None (occurrence: None)
  Receive Date: 20071109
  Receipt Date: 20071109
  Transmission Date: 20080405
  Serious: Yes (Hospitalization)
  Sender: FDA-Public Use
  Company Number: None

PATIENT
  Age: 87 Year
  Sex: Male
  Weight: 77.1 kg

DRUGS (7)
  1. HEPARIN [Suspect]
     Indication: PULMONARY EMBOLISM
     Dosage: 18 UNITS/KG PER HOUR IV DRIP
     Route: 041
     Dates: start: 20070301, end: 20070305
  2. WARFARIN SODIUM [Suspect]
     Indication: PULMONARY EMBOLISM
     Dosage: 5MG DAILY PO
     Route: 048
     Dates: start: 20070301, end: 20070305
  3. NIFEDIPINE [Concomitant]
  4. ATORVASTATIN CALCIUM [Concomitant]
  5. ERYTHROPOETIN [Concomitant]
  6. ASPIRIN [Concomitant]
  7. CALCIUM + VITAMIN D [Concomitant]

REACTIONS (6)
  - ANAEMIA [None]
  - HIP SWELLING [None]
  - MUSCLE SWELLING [None]
  - MUSCULOSKELETAL CHEST PAIN [None]
  - SWELLING [None]
  - TENDERNESS [None]
